FAERS Safety Report 15036093 (Version 1)
Quarter: 2018Q2

REPORT INFORMATION
  Report Type: Spontaneous
  Country: US (occurrence: US)
  Receive Date: 20180620
  Receipt Date: 20180620
  Transmission Date: 20180711
  Serious: No
  Sender: FDA-Public Use
  Company Number: US-SA-2018SA158743

PATIENT
  Sex: Female

DRUGS (2)
  1. VYVANSE [Suspect]
     Active Substance: LISDEXAMFETAMINE DIMESYLATE
  2. PRALUENT [Suspect]
     Active Substance: ALIROCUMAB
     Dosage: UNK
     Dates: start: 20180226, end: 20180609

REACTIONS (5)
  - Dizziness [Unknown]
  - Pain in extremity [Unknown]
  - Confusional state [Unknown]
  - Photosensitivity reaction [Unknown]
  - Muscle spasms [Unknown]
